FAERS Safety Report 8841840 (Version 1)
Quarter: 2012Q4

REPORT INFORMATION
  Report Type: 
  Country: US (occurrence: US)
  Receive Date: 20121016
  Receipt Date: 20121016
  Transmission Date: 20130627
  Serious: Yes (Other)
  Sender: FDA-Public Use
  Company Number: US-SANOFI-AVENTIS-2012SA073141

PATIENT
  Age: 70 Year
  Sex: Female

DRUGS (3)
  1. LANTUS SOLOSTAR [Suspect]
     Dosage: Dose:60 unit(s)
     Route: 058
     Dates: start: 2010
  2. SOLOSTAR [Suspect]
     Dates: start: 2010
  3. METFORMIN [Concomitant]

REACTIONS (1)
  - Foot fracture [Unknown]
